FAERS Safety Report 6375612-9 (Version None)
Quarter: 2009Q3

REPORT INFORMATION
  Report Type: 
  Country: None (occurrence: None)
  Receive Date: 20090921
  Receipt Date: 20090914
  Transmission Date: 20100115
  Serious: Yes (Hospitalization)
  Sender: FDA-Public Use
  Company Number: SPVI-2009-01833

PATIENT
  Age: 59 Year
  Sex: Male

DRUGS (1)
  1. FOSRENOL [Suspect]
     Indication: HYPERPHOSPHATAEMIA
     Dosage: 2000 MG, (2) 1000MG WITH EACH MEAL, ORAL
     Route: 048
     Dates: start: 20080101

REACTIONS (2)
  - MUSCULAR WEAKNESS [None]
  - SENSATION OF HEAVINESS [None]
